FAERS Safety Report 25617723 (Version 2)
Quarter: 2025Q3

REPORT INFORMATION
  Report Type: Report from Study
  Country: US (occurrence: US)
  Receive Date: 20250729
  Receipt Date: 20250730
  Transmission Date: 20251020
  Serious: Yes (Hospitalization, Other)
  Sender: PFIZER
  Company Number: US-PFIZER INC-PV202500088533

PATIENT
  Age: 64 Year
  Sex: Female
  Weight: 59 kg

DRUGS (8)
  1. CARBOPLATIN [Suspect]
     Active Substance: CARBOPLATIN
     Indication: Non-small cell lung cancer
     Route: 042
     Dates: start: 20250212
  2. PEMETREXED [Suspect]
     Active Substance: PEMETREXED
     Indication: Non-small cell lung cancer
     Route: 042
     Dates: start: 20250212
  3. PEMBROLIZUMAB [Suspect]
     Active Substance: PEMBROLIZUMAB
     Indication: Non-small cell lung cancer
     Route: 042
     Dates: start: 20250212
  4. INVESTIGATIONAL PRODUCT [Suspect]
     Active Substance: INVESTIGATIONAL PRODUCT
     Indication: Non-small cell lung cancer
     Dates: start: 20250212, end: 20250422
  5. INVESTIGATIONAL PRODUCT [Suspect]
     Active Substance: INVESTIGATIONAL PRODUCT
     Dates: start: 20250513, end: 20250602
  6. MILK OF MAGNESIA [Concomitant]
     Active Substance: MAGNESIUM HYDROXIDE
     Indication: Constipation
     Route: 065
     Dates: start: 20250311
  7. SYNTHROID [Concomitant]
     Active Substance: LEVOTHYROXINE SODIUM
     Indication: Hypothyroidism
     Route: 065
     Dates: start: 20220114
  8. ACETAMINOPHEN\HYDROCODONE [Concomitant]
     Active Substance: ACETAMINOPHEN\HYDROCODONE
     Indication: Cachexia
     Dates: start: 20250303, end: 20250626

REACTIONS (5)
  - Normocytic anaemia [Recovered/Resolved]
  - Hypokalaemia [Recovered/Resolved]
  - Leukopenia [Recovered/Resolved]
  - Anaemia [Recovered/Resolved]
  - Neutrophil count decreased [Recovered/Resolved]

NARRATIVE: CASE EVENT DATE: 20250326
